FAERS Safety Report 8394355-3 (Version None)
Quarter: 2012Q2

REPORT INFORMATION
  Report Type: 
  Country: None (occurrence: None)
  Receive Date: 20120530
  Receipt Date: 20120522
  Transmission Date: 20120825
  Serious: Yes (Hospitalization)
  Sender: FDA-Public Use
  Company Number: US-BAYER-2011-097314

PATIENT
  Age: 31 Year
  Sex: Female
  Weight: 68.027 kg

DRUGS (12)
  1. YASMIN [Suspect]
     Indication: PREMENSTRUAL SYNDROME
     Dosage: UNK
     Route: 048
     Dates: start: 20070301, end: 20090916
  2. CIPROFLOXACIN [Concomitant]
     Dosage: UNK
     Dates: start: 20090101
  3. YAZ [Suspect]
     Indication: ENDOMETRIOSIS
     Dosage: UNK
     Route: 048
     Dates: start: 20070301, end: 20090916
  4. PROZAC [Concomitant]
     Dosage: 20 MG, UNK
     Route: 048
     Dates: start: 20090917
  5. YASMIN [Suspect]
  6. SYNTHROID [Concomitant]
     Indication: HYPOTHYROIDISM
     Dosage: UNK
     Dates: start: 20040101
  7. NAPROXEN [Concomitant]
     Indication: INFLAMMATION
     Dosage: UNK
     Dates: start: 20010101
  8. YASMIN [Suspect]
     Indication: ENDOMETRIOSIS
  9. YAZ [Suspect]
  10. IBUPROFEN [Concomitant]
     Indication: INFLAMMATION
     Dosage: UNK
     Dates: start: 20010101
  11. YAZ [Suspect]
     Indication: MENSTRUATION IRREGULAR
  12. YAZ [Suspect]
     Indication: PREMENSTRUAL SYNDROME

REACTIONS (7)
  - ANXIETY [None]
  - PSYCHOLOGICAL TRAUMA [None]
  - EMOTIONAL DISTRESS [None]
  - PAIN [None]
  - PULMONARY EMBOLISM [None]
  - INJURY [None]
  - DEPRESSION [None]
